FAERS Safety Report 15757170 (Version 6)
Quarter: 2019Q1

REPORT INFORMATION
  Report Type: Spontaneous
  Country: FR (occurrence: FR)
  Receive Date: 20181224
  Receipt Date: 20190129
  Transmission Date: 20190417
  Serious: Yes (Other)
  Sender: FDA-Public Use
  Company Number: PHHY2017FR199040

PATIENT
  Age: 70 Year
  Sex: Male

DRUGS (8)
  1. TERBINAFINE. [Suspect]
     Active Substance: TERBINAFINE
     Indication: OSTEOMYELITIS
  2. VORICONAZOLE. [Suspect]
     Active Substance: VORICONAZOLE
     Dosage: 200 MG, 2X/DAY
     Route: 065
  3. VORICONAZOLE. [Suspect]
     Active Substance: VORICONAZOLE
     Indication: OSTEOMYELITIS
     Dosage: 800 MG, 2X/DAY(PROGRESSIVE DOSE)
     Route: 065
  4. CEFTRIAXONE. [Concomitant]
     Active Substance: CEFTRIAXONE
     Indication: STAPHYLOCOCCAL INFECTION
     Dosage: 3 G, QD
     Route: 065
  5. MILTEFOSINE [Suspect]
     Active Substance: MILTEFOSINE
     Indication: SCEDOSPORIUM INFECTION
     Dosage: UNK
     Route: 065
  6. TERBINAFINE. [Suspect]
     Active Substance: TERBINAFINE
     Indication: SCEDOSPORIUM INFECTION
     Dosage: 500 MG, BID
     Route: 065
  7. TERBINAFINE. [Suspect]
     Active Substance: TERBINAFINE
     Indication: ARTHRITIS INFECTIVE
  8. VORICONAZOLE. [Suspect]
     Active Substance: VORICONAZOLE
     Indication: SCEDOSPORIUM INFECTION
     Dosage: 400 MG, 2X/DAY(LOADING DOSE)
     Route: 065

REACTIONS (10)
  - Disease recurrence [Recovered/Resolved]
  - Visual impairment [Recovered/Resolved]
  - Photosensitivity reaction [Recovering/Resolving]
  - Nausea [Recovered/Resolved]
  - Treatment failure [Unknown]
  - Asthenia [Recovered/Resolved]
  - Off label use [Recovered/Resolved]
  - Drug level decreased [Unknown]
  - Drug effective for unapproved indication [Unknown]
  - Squamous cell carcinoma of skin [Unknown]
